FAERS Safety Report 12050778 (Version 1)
Quarter: 2016Q1

REPORT INFORMATION
  Report Type: Report from Study
  Country: US (occurrence: US)
  Receive Date: 20160209
  Receipt Date: 20160209
  Transmission Date: 20160526
  Serious: No
  Sender: FDA-Public Use
  Company Number: US-ABBVIE-15P-163-1420303-00

PATIENT
  Sex: Female

DRUGS (1)
  1. HUMIRA [Suspect]
     Active Substance: ADALIMUMAB
     Indication: CROHN^S DISEASE
     Route: 065
     Dates: start: 20140529

REACTIONS (12)
  - Platelet disorder [Unknown]
  - Haemoglobin abnormal [Unknown]
  - Blood chloride abnormal [Unknown]
  - Transferrin saturation [Unknown]
  - Red cell distribution width increased [Unknown]
  - Haematocrit abnormal [Unknown]
  - Blood triglycerides increased [Unknown]
  - Asthenia [Not Recovered/Not Resolved]
  - Blood iron abnormal [Unknown]
  - Mean cell haemoglobin decreased [Unknown]
  - Iron binding capacity unsaturated [Unknown]
  - Mean cell volume abnormal [Unknown]
